FAERS Safety Report 6184409-4 (Version None)
Quarter: 2009Q2

REPORT INFORMATION
  Report Type: 
  Country: None (occurrence: None)
  Receive Date: 20090508
  Receipt Date: 20090428
  Transmission Date: 20091009
  Serious: Yes (Hospitalization, Congenital Anomaly)
  Sender: FDA-Public Use
  Company Number: B0572134A

PATIENT
  Sex: Male

DRUGS (3)
  1. LAMICTAL [Suspect]
     Indication: EPILEPSY
  2. VITAMIN D [Concomitant]
  3. POLYGYNAX [Concomitant]
     Dates: start: 20090101

REACTIONS (5)
  - DRUG EXPOSURE DURING PREGNANCY [None]
  - HYPERTONIA [None]
  - MACROCEPHALY [None]
  - MACROSOMIA [None]
  - NEONATAL DISORDER [None]
